FAERS Safety Report 25906095 (Version 3)
Quarter: 2025Q4

REPORT INFORMATION
  Report Type: Spontaneous
  Country: US (occurrence: US)
  Receive Date: 20251010
  Receipt Date: 20251015
  Transmission Date: 20260117
  Serious: No
  Sender: JOHNSON AND JOHNSON
  Company Number: US-JNJFOC-20251000562

PATIENT
  Age: 8 Year
  Sex: Male

DRUGS (5)
  1. RISPERDAL [Suspect]
     Active Substance: RISPERIDONE
     Indication: Anger
     Dosage: VARYING DOSES OF 0.5 MG AND 1 MG WITH FREQUENCY OF ONCE AND TWICE DAILY
     Route: 048
  2. RISPERDAL [Suspect]
     Active Substance: RISPERIDONE
     Indication: Insomnia
  3. RISPERDAL [Suspect]
     Active Substance: RISPERIDONE
     Indication: Irritability
  4. RISPERDAL [Suspect]
     Active Substance: RISPERIDONE
     Indication: Mood swings
  5. RISPERDAL [Suspect]
     Active Substance: RISPERIDONE
     Indication: Aggression

REACTIONS (4)
  - Sedation [Unknown]
  - Somnolence [Unknown]
  - Drug ineffective [Unknown]
  - Treatment noncompliance [Unknown]

NARRATIVE: CASE EVENT DATE: 20121031
